FAERS Safety Report 16183740 (Version 2)
Quarter: 2019Q2

REPORT INFORMATION
  Report Type: Spontaneous
  Country: US (occurrence: US)
  Receive Date: 20190411
  Receipt Date: 20190614
  Transmission Date: 20190711
  Serious: Yes (Hospitalization, Other)
  Sender: FDA-Public Use
  Company Number: US-BRISTOL-MYERS SQUIBB COMPANY-BMS-2019-032885

PATIENT
  Age: 74 Year
  Sex: Male
  Weight: 89 kg

DRUGS (12)
  1. CLONAZEPAM. [Concomitant]
     Active Substance: CLONAZEPAM
     Indication: ANXIETY
     Dosage: 0.5 MILLIGRAM, QD
     Route: 048
     Dates: start: 20181015
  2. ABIRATERONE. [Suspect]
     Active Substance: ABIRATERONE ACETATE
     Indication: PRODUCT USED FOR UNKNOWN INDICATION
     Route: 065
  3. PREDNISONE. [Suspect]
     Active Substance: PREDNISONE
     Indication: PRODUCT USED FOR UNKNOWN INDICATION
     Route: 065
  4. MAGNESIUM [Concomitant]
     Active Substance: MAGNESIUM
     Indication: PRODUCT USED FOR UNKNOWN INDICATION
     Dosage: 1 TAB, QD
     Route: 048
     Dates: start: 20181018
  5. VALSARTAN + HIDROCLOROTIAZIDA [Concomitant]
     Active Substance: HYDROCHLOROTHIAZIDE\VALSARTAN
     Indication: HYPERTENSION
     Dosage: 1 DOSAGE FORM, QD
     Route: 048
     Dates: start: 20180514
  6. IPILIMUMAB [Suspect]
     Active Substance: IPILIMUMAB
     Indication: PRODUCT USED FOR UNKNOWN INDICATION
     Route: 065
  7. CHOLECALCIFEROL [Concomitant]
     Active Substance: CHOLECALCIFEROL
     Indication: PRODUCT USED FOR UNKNOWN INDICATION
     Dosage: 1 DOSAGE FORM, QD
     Route: 065
     Dates: start: 20180710
  8. DIPHENHYDRAMINE. [Concomitant]
     Active Substance: DIPHENHYDRAMINE
     Indication: PRURITUS
     Dosage: 30 MILLILITER, Q4H
     Route: 048
     Dates: start: 20190215
  9. ESCITALOPRAM [Concomitant]
     Active Substance: ESCITALOPRAM OXALATE
     Indication: ANXIETY
     Dosage: 5 MILLIGRAM, QD
     Route: 048
     Dates: start: 20180914
  10. GABAPENTIN. [Concomitant]
     Active Substance: GABAPENTIN
     Indication: PAIN
     Dosage: 300 MILLIGRAM, TID
     Route: 048
     Dates: start: 20181018
  11. NEBIVOLOL. [Concomitant]
     Active Substance: NEBIVOLOL
     Indication: HYPERTENSION
     Dosage: 5 MILLIGRAM, PRN
     Route: 048
     Dates: start: 20180430
  12. DIPHENHYDRAMINE W/ZINC ACETATE [Concomitant]
     Indication: RASH PRURITIC
     Dosage: PRN
     Route: 065
     Dates: start: 20190207

REACTIONS (3)
  - Diarrhoea [Unknown]
  - Syncope [Unknown]
  - Culture stool positive [Unknown]

NARRATIVE: CASE EVENT DATE: 20190305
